FAERS Safety Report 10184808 (Version 1)
Quarter: 2014Q2

REPORT INFORMATION
  Report Type: Spontaneous
  Country: US (occurrence: US)
  Receive Date: 20140521
  Receipt Date: 20140521
  Transmission Date: 20141212
  Serious: Yes (Other)
  Sender: FDA-Public Use
  Company Number: US-BEH-2014042593

PATIENT
  Sex: Male
  Weight: 95 kg

DRUGS (14)
  1. HIZENTRA [Suspect]
     Dosage: 1-4 SITES OVER 1-2 HOURS
     Route: 058
  2. HIZENTRA [Suspect]
     Indication: CONGENITAL HYPOGAMMAGLOBULINAEMIA
     Dosage: 1-4 SITES OVER 1-2 HOURS
     Route: 058
  3. ACETAMINOPHEN [Concomitant]
  4. DIPHENHYDRAMINE [Concomitant]
  5. LIDOCAINE/PRILOCAINE [Concomitant]
  6. EPI PEN [Concomitant]
  7. ZOLOFT [Concomitant]
  8. DEXILANT [Concomitant]
  9. NORVASC [Concomitant]
  10. VIAGRA [Concomitant]
  11. ADVAIR [Concomitant]
  12. LISINOPRIL [Concomitant]
  13. NEXIUM [Concomitant]
  14. PROAIR [Concomitant]

REACTIONS (2)
  - Muscle rupture [Unknown]
  - Myalgia [Unknown]
